FAERS Safety Report 9757939 (Version 2)
Quarter: 2015Q4

REPORT INFORMATION
  Report Type: Report from Study
  Country: US (occurrence: US)
  Receive Date: 20131216
  Receipt Date: 20151023
  Transmission Date: 20160305
  Serious: Yes (Death)
  Sender: FDA-Public Use
  Company Number: US-ROCHE-1318718

PATIENT
  Age: 64 Year
  Sex: Male

DRUGS (13)
  1. ACETAMINOPHEN. [Concomitant]
     Active Substance: ACETAMINOPHEN
     Dosage: EVERY 4 HOURS PRN
     Route: 048
  2. ZAROXOLYN [Concomitant]
     Active Substance: METOLAZONE
     Route: 048
  3. CARVEDILOL. [Concomitant]
     Active Substance: CARVEDILOL
     Dosage: WITH MEALS
     Route: 048
  4. MAGNESIUM HYDROXIDE. [Concomitant]
     Active Substance: MAGNESIUM HYDROXIDE
     Indication: CONSTIPATION
     Route: 048
  5. MUCINEX [Concomitant]
     Active Substance: GUAIFENESIN
     Route: 048
  6. ALLOPURINOL. [Concomitant]
     Active Substance: ALLOPURINOL
     Route: 048
  7. OMEPRAZOLE. [Concomitant]
     Active Substance: OMEPRAZOLE
     Dosage: EVERY MORNING BEFORE BREAKFAST
     Route: 048
  8. RITUXAN [Suspect]
     Active Substance: RITUXIMAB
     Indication: CHRONIC LYMPHOCYTIC LEUKAEMIA
     Dosage: 800MG IN NS 500ML IVPB ONCE
     Route: 042
     Dates: start: 20130724
  9. SODIUM CHLORIDE. [Concomitant]
     Active Substance: SODIUM CHLORIDE
     Route: 045
  10. ACETAMINOPHEN. [Concomitant]
     Active Substance: ACETAMINOPHEN
     Indication: PYREXIA
     Dosage: EVERY 1 HOURS PRN
     Route: 048
  11. NITROGLYCERINE [Concomitant]
     Active Substance: NITROGLYCERIN
     Indication: CHEST PAIN
     Dosage: AS REQUIRED
     Route: 060
  12. FUROSEMIDE. [Concomitant]
     Active Substance: FUROSEMIDE
     Route: 042
  13. DEXAMETHASONE. [Concomitant]
     Active Substance: DEXAMETHASONE
     Dosage: 10MG IV ONCE
     Route: 042

REACTIONS (3)
  - Pruritus [Unknown]
  - Death [Fatal]
  - Infusion related reaction [Unknown]

NARRATIVE: CASE EVENT DATE: 20130724
